FAERS Safety Report 7594432-0 (Version None)
Quarter: 2011Q3

REPORT INFORMATION
  Report Type: 
  Country: None (occurrence: None)
  Receive Date: 20110707
  Receipt Date: 20110628
  Transmission Date: 20111222
  Serious: Yes (Death, Hospitalization)
  Sender: FDA-Public Use
  Company Number: US-BRISTOL-MYERS SQUIBB COMPANY-14825038

PATIENT
  Age: 62 Year
  Sex: Male
  Weight: 78 kg

DRUGS (10)
  1. ZOFRAN [Concomitant]
     Route: 065
  2. CETUXIMAB [Suspect]
     Indication: NON-SMALL CELL LUNG CANCER
     Route: 042
     Dates: start: 20091007, end: 20091007
  3. PACLITAXEL [Suspect]
     Indication: NON-SMALL CELL LUNG CANCER
     Route: 042
     Dates: start: 20091007, end: 20091007
  4. PHENERGAN HCL [Concomitant]
     Route: 065
  5. FLOMAX [Concomitant]
     Route: 065
  6. CARBOPLATIN [Suspect]
     Indication: NON-SMALL CELL LUNG CANCER
     Route: 042
     Dates: start: 20091007, end: 20091007
  7. LIPITOR [Concomitant]
  8. GUAIFENESIN + CODEINE [Concomitant]
     Route: 065
  9. LORTAB [Concomitant]
     Route: 065
  10. AVALIDE [Concomitant]

REACTIONS (6)
  - DEHYDRATION [None]
  - NAUSEA [None]
  - PNEUMONIA [None]
  - PYREXIA [None]
  - VOMITING [None]
  - HAEMOPTYSIS [None]
